FAERS Safety Report 5943488-7 (Version None)
Quarter: 2008Q4

REPORT INFORMATION
  Report Type: 
  Country: None (occurrence: None)
  Receive Date: 20081106
  Receipt Date: 20081028
  Transmission Date: 20090506
  Serious: Yes (Other)
  Sender: FDA-Public Use
  Company Number: GB-MERCK-0810GBR00140

PATIENT
  Age: 63 Year
  Sex: Female

DRUGS (8)
  1. DECADRON [Suspect]
     Route: 065
  2. BORTEZOMIB [Suspect]
     Indication: MYELOMA RECURRENCE
     Route: 042
     Dates: start: 20080512, end: 20080804
  3. BORTEZOMIB [Suspect]
     Route: 042
     Dates: start: 20080805
  4. ONDANSETRON [Suspect]
     Route: 048
  5. ACYCLOVIR [Concomitant]
     Indication: PROPHYLAXIS
     Route: 048
  6. FOLIC ACID [Concomitant]
     Indication: BLOOD DISORDER
     Route: 048
  7. METOCLOPRAMIDE [Concomitant]
     Indication: NAUSEA
     Route: 048
  8. MORPHINE SULFATE [Concomitant]
     Indication: PAIN
     Route: 048

REACTIONS (1)
  - LIVER FUNCTION TEST ABNORMAL [None]
